FAERS Safety Report 9478309 (Version 1)
Quarter: 2013Q3

REPORT INFORMATION
  Report Type: Spontaneous
  Country: DE (occurrence: None)
  Receive Date: 20130821
  Receipt Date: 20130821
  Transmission Date: 20140515
  Serious: Yes (Life-Threatening)
  Sender: FDA-Public Use
  Company Number: AUR-APL-2013-06833

PATIENT
  Age: 36 Year
  Sex: 0

DRUGS (1)
  1. CEFUROXIME [Suspect]
     Indication: ENDOMETRITIS
     Route: 048
     Dates: start: 2013

REACTIONS (6)
  - Depression [None]
  - Suicidal ideation [None]
  - Psychotic disorder [None]
  - Ear pain [None]
  - Chest pain [None]
  - Decreased appetite [None]
